FAERS Safety Report 23615922 (Version 1)
Quarter: 2024Q1

REPORT INFORMATION
  Report Type: Spontaneous
  Country: US (occurrence: US)
  Receive Date: 20240311
  Receipt Date: 20240311
  Transmission Date: 20240409
  Serious: No
  Sender: FDA-Public Use
  Company Number: US-ALCON LABORATORIES-ALC2023US004716

PATIENT
  Age: 66 Year
  Sex: Female

DRUGS (5)
  1. PHENYLEPHRINE HYDROCHLORIDE [Suspect]
     Active Substance: PHENYLEPHRINE HYDROCHLORIDE
     Indication: Pupil dilation procedure
     Dosage: UNK
     Route: 047
     Dates: start: 20210531
  2. PHENYLEPHRINE HYDROCHLORIDE [Suspect]
     Active Substance: PHENYLEPHRINE HYDROCHLORIDE
     Indication: Ophthalmological examination
  3. PRILOSEC [Concomitant]
     Active Substance: OMEPRAZOLE MAGNESIUM
     Indication: Dyspepsia
     Dosage: NIGHT
     Route: 065
  4. TROPICAMIDE [Concomitant]
     Active Substance: TROPICAMIDE
     Indication: Pupil dilation procedure
     Dosage: UNK
     Route: 047
     Dates: start: 20210531
  5. TROPICAMIDE [Concomitant]
     Active Substance: TROPICAMIDE
     Indication: Ophthalmological examination

REACTIONS (2)
  - Mydriasis [Not Recovered/Not Resolved]
  - Vision blurred [Not Recovered/Not Resolved]

NARRATIVE: CASE EVENT DATE: 20210601
